FAERS Safety Report 19295129 (Version 1)
Quarter: 2021Q2

REPORT INFORMATION
  Report Type: Spontaneous
  Country: US (occurrence: US)
  Receive Date: 20210524
  Receipt Date: 20210524
  Transmission Date: 20210717
  Serious: No
  Sender: FDA-Public Use
  Company Number: US-PFIZER INC-2020466029

PATIENT
  Age: 70 Year
  Sex: Female

DRUGS (1)
  1. CHANTIX [Suspect]
     Active Substance: VARENICLINE TARTRATE
     Dosage: UNK (0.5 MG (11)?1 MG (42) ORAL TABLET/ACCORDING TO TITRATION DIRECTIONS)
     Route: 048

REACTIONS (2)
  - Intentional product misuse [Unknown]
  - Withdrawal syndrome [Unknown]
